FAERS Safety Report 20167251 (Version 1)
Quarter: 2021Q4

REPORT INFORMATION
  Report Type: Spontaneous
  Country: US (occurrence: None)
  Receive Date: 20211208
  Receipt Date: 20211208
  Transmission Date: 20220303
  Serious: No
  Sender: FDA-Public Use
  Company Number: None

PATIENT
  Age: 50 Year
  Sex: Male
  Weight: 90.7 kg

DRUGS (9)
  1. VEKLURY [Suspect]
     Active Substance: REMDESIVIR
     Indication: COVID-19 pneumonia
     Dosage: FREQUENCY : DAILY;?
     Route: 042
  2. AZITHROMYCIN ANHYDROUS [Concomitant]
     Active Substance: AZITHROMYCIN ANHYDROUS
     Dates: start: 20211206
  3. Amoxicillin Clavulanate 875mg [Concomitant]
     Dates: start: 20211206
  4. MYLANTA [Concomitant]
     Active Substance: ALUMINUM HYDROXIDE\DIMETHICONE\MAGNESIUM HYDROXIDE
     Dates: start: 20211206
  5. BENZONATATE [Concomitant]
     Active Substance: BENZONATATE
     Dates: start: 20211206
  6. Dexamethasone 6mg IV [Concomitant]
     Dates: start: 20211206
  7. ENOXAPARIN [Concomitant]
     Active Substance: ENOXAPARIN
     Dates: start: 20211206
  8. Duo-Neb [Concomitant]
     Dates: start: 20211206
  9. Albuterol Neb Solution [Concomitant]
     Dates: start: 20211206

REACTIONS (1)
  - Bradycardia [None]

NARRATIVE: CASE EVENT DATE: 20211207
